FAERS Safety Report 25021746 (Version 1)
Quarter: 2025Q1

REPORT INFORMATION
  Report Type: Spontaneous
  Country: US (occurrence: US)
  Receive Date: 20250228
  Receipt Date: 20250228
  Transmission Date: 20250409
  Serious: No
  Sender: ABBVIE
  Company Number: US-ABBVIE-6150607

PATIENT
  Age: 59 Year
  Sex: Female
  Weight: 61 kg

DRUGS (8)
  1. BOTOX [Suspect]
     Active Substance: ONABOTULINUMTOXINA
     Indication: Migraine
     Route: 023
     Dates: start: 20250210, end: 20250210
  2. BOTOX [Suspect]
     Active Substance: ONABOTULINUMTOXINA
     Indication: Migraine
     Route: 023
     Dates: start: 2023, end: 2023
  3. BOTOX [Suspect]
     Active Substance: ONABOTULINUMTOXINA
     Indication: Migraine
     Route: 030
     Dates: start: 2004, end: 2004
  4. VITAMIN D3 [Concomitant]
     Active Substance: CHOLECALCIFEROL
     Indication: Vitamin supplementation
  5. LATISSE [Suspect]
     Active Substance: BIMATOPROST
     Indication: Growth of eyelashes
     Route: 061
     Dates: start: 20250218, end: 20250224
  6. VITAMIN B12 [Concomitant]
     Active Substance: CYANOCOBALAMIN
     Indication: Vitamin supplementation
  7. TELMISARTAN [Concomitant]
     Active Substance: TELMISARTAN
     Indication: Blood pressure management
  8. METFORMIN [Concomitant]
     Active Substance: METFORMIN HYDROCHLORIDE
     Indication: Diabetes mellitus

REACTIONS (6)
  - Erythema [Recovering/Resolving]
  - Lacrimation increased [Recovering/Resolving]
  - Drug ineffective [Not Recovered/Not Resolved]
  - Foreign body sensation in eyes [Recovering/Resolving]
  - Pruritus [Recovering/Resolving]
  - Skin wrinkling [Not Recovered/Not Resolved]

NARRATIVE: CASE EVENT DATE: 20250207
